FAERS Safety Report 7534161-2 (Version None)
Quarter: 2011Q2

REPORT INFORMATION
  Report Type: 
  Country: None (occurrence: None)
  Receive Date: 20110608
  Receipt Date: 20061201
  Transmission Date: 20111010
  Serious: Yes (Hospitalization)
  Sender: FDA-Public Use
  Company Number: PHMT2006CA02069

PATIENT
  Sex: Male
  Weight: 90.702 kg

DRUGS (2)
  1. DIOVAN [Suspect]
     Indication: HYPERTENSION
     Dosage: 80 MG, QD
     Route: 048
     Dates: start: 20010102
  2. ADALAT CC [Concomitant]
     Dosage: 30 MG, QD

REACTIONS (3)
  - CALCULUS URETHRAL [None]
  - NEPHROLITHIASIS [None]
  - RENAL COLIC [None]
